FAERS Safety Report 18584764 (Version 2)
Quarter: 2020Q4

REPORT INFORMATION
  Report Type: Spontaneous
  Country: AU (occurrence: AU)
  Receive Date: 20201207
  Receipt Date: 20201208
  Transmission Date: 20210114
  Serious: Yes (Death, Hospitalization)
  Sender: FDA-Public Use
  Company Number: AU-JNJFOC-20201209676

PATIENT
  Age: 52 Year
  Sex: Male

DRUGS (1)
  1. TRABECTEDIN [Suspect]
     Active Substance: TRABECTEDIN
     Indication: LIPOSARCOMA
     Dosage: 2 X 1 MG VIAL AND 2 X 0.25 MG VIAL
     Route: 042
     Dates: start: 20200827

REACTIONS (1)
  - Death [Fatal]
